FAERS Safety Report 12821014 (Version 1)
Quarter: 2016Q4

REPORT INFORMATION
  Report Type: Spontaneous
  Country: US (occurrence: US)
  Receive Date: 20161006
  Receipt Date: 20161006
  Transmission Date: 20170207
  Serious: No
  Sender: FDA-Public Use
  Company Number: US-009507513-1610USA001922

PATIENT

DRUGS (1)
  1. PROPECIA [Suspect]
     Active Substance: FINASTERIDE
     Indication: PRODUCT USED FOR UNKNOWN INDICATION
     Dosage: UNK
     Route: 048

REACTIONS (13)
  - Disturbance in attention [Unknown]
  - Personality change [Unknown]
  - Loss of libido [Unknown]
  - Apathy [Unknown]
  - Depression [Unknown]
  - Erectile dysfunction [Unknown]
  - Anxiety [Unknown]
  - Adverse event [Unknown]
  - Adrenal disorder [Unknown]
  - Muscle atrophy [Unknown]
  - Asthenia [Unknown]
  - Hypogonadism [Unknown]
  - Hypothyroidism [Unknown]
